FAERS Safety Report 8296146-0 (Version None)
Quarter: 2012Q2

REPORT INFORMATION
  Report Type: 
  Country: None (occurrence: None)
  Receive Date: 20120418
  Receipt Date: 20120410
  Transmission Date: 20120825
  Serious: Yes (Hospitalization)
  Sender: FDA-Public Use
  Company Number: FR-GLAXOSMITHKLINE-B0794308A

PATIENT
  Sex: Male
  Weight: 69 kg

DRUGS (10)
  1. NEORAL [Concomitant]
     Dosage: 125MG TWICE PER DAY
  2. PRAVASTATIN [Concomitant]
     Dosage: 10MG PER DAY
  3. VALACYCLOVIR HYDROCHLORIDE [Suspect]
     Indication: HERPES ZOSTER
     Dosage: 1G TWICE PER DAY
     Route: 048
     Dates: start: 20120301, end: 20120316
  4. ZOVIRAX [Suspect]
     Indication: HERPES ZOSTER
     Route: 042
     Dates: start: 20120316, end: 20120326
  5. PREDNISONE TAB [Concomitant]
     Dosage: 5MG PER DAY
  6. IMURAN [Concomitant]
     Dosage: 75MG PER DAY
  7. ENALAPRIL MALEATE [Concomitant]
     Dosage: 5MG PER DAY
  8. ASPIRIN [Concomitant]
     Dosage: 75MG PER DAY
  9. EZETIMIBE [Concomitant]
  10. TENORMIN [Concomitant]
     Dosage: 50MG PER DAY

REACTIONS (2)
  - HEADACHE [None]
  - MENINGITIS ASEPTIC [None]
